FAERS Safety Report 21992983 (Version 1)
Quarter: 2023Q1

REPORT INFORMATION
  Report Type: Spontaneous
  Country: US (occurrence: US)
  Receive Date: 20230215
  Receipt Date: 20230215
  Transmission Date: 20230418
  Serious: No
  Sender: FDA-Public Use
  Company Number: US-BRISTOL-MYERS SQUIBB COMPANY-2023-022328

PATIENT
  Age: 71 Year
  Sex: Female

DRUGS (1)
  1. REBLOZYL [Suspect]
     Active Substance: LUSPATERCEPT-AAMT
     Indication: Product used for unknown indication
     Dosage: DOSE : UNAVAILABLE;     FREQ : ADMINISTER 150MG (TWO 75MG VIALS) SUBCUTANEOUSLY EVERY 2 WEEKS
     Route: 042

REACTIONS (3)
  - Weight decreased [Unknown]
  - Off label use [Unknown]
  - Renal disorder [Unknown]
